FAERS Safety Report 16345372 (Version 3)
Quarter: 2019Q3

REPORT INFORMATION
  Report Type: Report from Study
  Country: ZA (occurrence: ZA)
  Receive Date: 20190523
  Receipt Date: 20190920
  Transmission Date: 20191004
  Serious: Yes (Life-Threatening, Hospitalization)
  Sender: FDA-Public Use
  Company Number: ZA-SA-2019SA138582

PATIENT
  Age: 66 Year
  Sex: Female

DRUGS (9)
  1. AMLOC [AMLODIPINE BESILATE] [Concomitant]
     Active Substance: AMLODIPINE BESYLATE
     Dosage: UNK UNK, UNK
     Dates: start: 20190520
  2. MEDOXICAM [Concomitant]
     Dosage: UNK UNK, UNK
     Dates: start: 20190520
  3. METFORMIN [Concomitant]
     Active Substance: METFORMIN HYDROCHLORIDE
     Dosage: 1000 MG, QD (BEFORE BREAKFAST)
     Dates: start: 20190101
  4. DIAGLUCIDE [Concomitant]
     Active Substance: GLICLAZIDE
     Dosage: 60 MG, QD (BEFORE BREAKFAST)
     Dates: start: 20190520
  5. INSULIN GLULISINE [Suspect]
     Active Substance: INSULIN GLULISINE
     Dosage: AT BEDTIME- 15U, BEFORE SUPPER- 15 UNITS, BEFORE BREAKFAST 20 U, TID
     Dates: start: 20190506
  6. INSULIN GLULISINE [Suspect]
     Active Substance: INSULIN GLULISINE
     Dosage: AT BEFORE BREAKFAST- 6U, BEFORE SUPPER- 8U, BEFORE LUNCH- 8U)
     Dates: start: 20190524
  7. INSULIN GLARGINE [Suspect]
     Active Substance: INSULIN GLARGINE
     Dosage: 16 U, HS (AT BEDTIME)
     Dates: start: 20190520
  8. ASPAVOR [Concomitant]
     Active Substance: ATORVASTATIN
     Dosage: UNK UNK, UNK
     Dates: start: 20190520
  9. SOTAHEXAL [Concomitant]
     Active Substance: SOTALOL
     Dosage: UNK UNK, UNK
     Dates: start: 20190520

REACTIONS (4)
  - Loss of consciousness [Not Recovered/Not Resolved]
  - Blood glucose increased [Not Recovered/Not Resolved]
  - Hypoglycaemia [Not Recovered/Not Resolved]
  - Influenza [Not Recovered/Not Resolved]

NARRATIVE: CASE EVENT DATE: 20190707
